FAERS Safety Report 8511842-5 (Version None)
Quarter: 2012Q3

REPORT INFORMATION
  Report Type: 
  Country: None (occurrence: None)
  Receive Date: 20120716
  Receipt Date: 20120706
  Transmission Date: 20120928
  Serious: Yes (Hospitalization)
  Sender: FDA-Public Use
  Company Number: US-ASTRAZENECA-2012SE46228

PATIENT
  Age: 77 Year
  Sex: Male
  Weight: 68 kg

DRUGS (3)
  1. ASPIRIN [Concomitant]
  2. IRON [Concomitant]
  3. CRESTOR [Suspect]
     Route: 048

REACTIONS (1)
  - LIVER DISORDER [None]
